FAERS Safety Report 24223961 (Version 1)
Quarter: 2024Q3

REPORT INFORMATION
  Report Type: Spontaneous
  Country: US (occurrence: None)
  Receive Date: 20240817
  Receipt Date: 20240817
  Transmission Date: 20241016
  Serious: Yes (Other)
  Sender: Public
  Company Number: None

PATIENT
  Age: 62 Year
  Sex: Female

DRUGS (1)
  1. BUPRENORPHINE [Suspect]
     Active Substance: BUPRENORPHINE
     Indication: Pain
     Dosage: 1 PATCH WEEKLY TOPICAL
     Route: 061
     Dates: start: 20240318, end: 20240809

REACTIONS (4)
  - Application site rash [None]
  - Application site burn [None]
  - Application site exfoliation [None]
  - Application site pruritus [None]

NARRATIVE: CASE EVENT DATE: 20240808
